FAERS Safety Report 11508205 (Version 1)
Quarter: 2015Q3

REPORT INFORMATION
  Report Type: Spontaneous
  Country: US (occurrence: US)
  Receive Date: 20150903
  Receipt Date: 20150903
  Transmission Date: 20151125
  Serious: No
  Sender: FDA-Public Use
  Company Number: US-ELI_LILLY_AND_COMPANY-US200911006302

PATIENT
  Age: 78 Year
  Sex: Female

DRUGS (8)
  1. METOPROLOL [Concomitant]
     Active Substance: METOPROLOL
  2. TORSEMIDE. [Concomitant]
     Active Substance: TORSEMIDE
  3. HUMALOG [Suspect]
     Active Substance: INSULIN LISPRO
     Dosage: 50 U, DAILY (1/D)
     Dates: start: 2007
  4. LANTUS [Concomitant]
     Active Substance: INSULIN GLARGINE
  5. ALLOPURINOL. [Concomitant]
     Active Substance: ALLOPURINOL
  6. CLONIDIN [Concomitant]
     Active Substance: CLONIDINE
  7. METFORMIN [Concomitant]
     Active Substance: METFORMIN HYDROCHLORIDE
  8. COZAAR [Concomitant]
     Active Substance: LOSARTAN POTASSIUM

REACTIONS (3)
  - Poor quality drug administered [Unknown]
  - Incorrect product storage [Unknown]
  - Visual impairment [Not Recovered/Not Resolved]

NARRATIVE: CASE EVENT DATE: 200911
